FAERS Safety Report 9279057 (Version 1)
Quarter: 2013Q2

REPORT INFORMATION
  Report Type: Spontaneous
  Country: KW (occurrence: KW)
  Receive Date: 20130508
  Receipt Date: 20130508
  Transmission Date: 20140414
  Serious: Yes (Other)
  Sender: FDA-Public Use
  Company Number: KW-JNJFOC-20130414833

PATIENT
  Age: 12 Year
  Sex: Female
  Weight: 54 kg

DRUGS (1)
  1. CONCERTA [Suspect]
     Indication: ATTENTION DEFICIT/HYPERACTIVITY DISORDER
     Route: 048
     Dates: start: 20130421, end: 20130421

REACTIONS (8)
  - Hallucinations, mixed [Unknown]
  - Convulsion [Unknown]
  - Dyspnoea [Unknown]
  - Aggression [Unknown]
  - Insomnia [Unknown]
  - Restlessness [Unknown]
  - Logorrhoea [Unknown]
  - Incoherent [Unknown]
